FAERS Safety Report 11740351 (Version 2)
Quarter: 2015Q4

REPORT INFORMATION
  Report Type: Spontaneous
  Country: US (occurrence: US)
  Receive Date: 20151110
  Receipt Date: 20151120
  Transmission Date: 20160304
  Serious: No
  Sender: FDA-Public Use
  Company Number: US-ELI_LILLY_AND_COMPANY-US201207003314

PATIENT
  Age: 79 Year
  Sex: Female

DRUGS (4)
  1. FORTEO [Suspect]
     Active Substance: TERIPARATIDE
     Indication: OSTEOPOROSIS
     Dosage: 20 UG, QD
     Dates: start: 201205
  2. FORTEO [Suspect]
     Active Substance: TERIPARATIDE
     Dosage: 20 UG, QD
  3. FORTEO [Suspect]
     Active Substance: TERIPARATIDE
     Dosage: 20 UG, QD
  4. FORTEO [Suspect]
     Active Substance: TERIPARATIDE
     Dosage: 20 UG, QD

REACTIONS (14)
  - Bronchitis [Not Recovered/Not Resolved]
  - Peripheral venous disease [Unknown]
  - Fall [Unknown]
  - Peripheral swelling [Unknown]
  - Bone pain [Unknown]
  - Arthralgia [Unknown]
  - Asthma [Not Recovered/Not Resolved]
  - Lung infection [Not Recovered/Not Resolved]
  - Neuropathy peripheral [Unknown]
  - Multiple fractures [Unknown]
  - Nausea [Unknown]
  - Heart rate increased [Unknown]
  - External ear pain [Unknown]
  - Injection site bruising [Unknown]

NARRATIVE: CASE EVENT DATE: 20120912
